FAERS Safety Report 11029510 (Version 1)
Quarter: 2015Q2

REPORT INFORMATION
  Report Type: Spontaneous
  Country: US (occurrence: None)
  Receive Date: 20150414
  Receipt Date: 20150414
  Transmission Date: 20150821
  Serious: No
  Sender: FDA-Public Use
  Company Number: None

PATIENT

DRUGS (6)
  1. RESTASIS [Suspect]
     Active Substance: CYCLOSPORINE
     Route: 047
  2. CIPROFLOXACIN HYDROCHLORIDE. [Suspect]
     Active Substance: CIPROFLOXACIN HYDROCHLORIDE
     Route: 047
     Dates: start: 20150109
  3. PREDNISOLONE ACETATE. [Suspect]
     Active Substance: PREDNISOLONE ACETATE
     Route: 047
  4. CIPROFLOXACIN HYDROCHLORIDE. [Suspect]
     Active Substance: CIPROFLOXACIN HYDROCHLORIDE
     Route: 047
  5. PRED FORTE [Suspect]
     Active Substance: PREDNISOLONE ACETATE
     Dates: start: 20150109
  6. PROPARACAINE [Suspect]
     Active Substance: PROPARACAINE
     Dates: start: 20150109

REACTIONS (1)
  - Mycobacterium chelonae infection [None]
